FAERS Safety Report 11291525 (Version 1)
Quarter: 2015Q3

REPORT INFORMATION
  Report Type: Spontaneous
  Country: US (occurrence: None)
  Receive Date: 20150721
  Receipt Date: 20150721
  Transmission Date: 20151125
  Serious: No
  Sender: FDA-Public Use
  Company Number: None

PATIENT
  Age: 46 Year
  Sex: Female

DRUGS (5)
  1. AMPYRA [Suspect]
     Active Substance: DALFAMPRIDINE
     Indication: MULTIPLE SCLEROSIS
     Route: 048
     Dates: start: 20150618, end: 20150719
  2. MELOXICAM. [Concomitant]
     Active Substance: MELOXICAM
  3. GLATIRAMER [Concomitant]
     Active Substance: GLATIRAMER
  4. RITUXIMAB [Concomitant]
     Active Substance: RITUXIMAB
  5. SUMATRIPTAN. [Concomitant]
     Active Substance: SUMATRIPTAN

REACTIONS (6)
  - Mobility decreased [None]
  - Fatigue [None]
  - Pain [None]
  - Lethargy [None]
  - Back pain [None]
  - Dysarthria [None]

NARRATIVE: CASE EVENT DATE: 20150618
